FAERS Safety Report 6462446-X (Version None)
Quarter: 2009Q4

REPORT INFORMATION
  Report Type: 
  Country: None (occurrence: None)
  Receive Date: 20091130
  Receipt Date: 20091130
  Transmission Date: 20100525
  Serious: Yes (Other)
  Sender: FDA-Public Use
  Company Number: US-PFIZER INC-2009248163

PATIENT
  Sex: Female
  Weight: 71.655 kg

DRUGS (7)
  1. LIPITOR [Suspect]
     Indication: BLOOD CHOLESTEROL
     Dosage: 40 MG, UNK
  2. ACETYLSALICYLIC ACID [Concomitant]
  3. DIPHENOXYLATE HCL AND ATROPINE SULFATE [Concomitant]
     Indication: DIARRHOEA
     Dosage: 5 MG, 4 TIMES A DAY AS NEEDED
  4. SYNTHROID [Concomitant]
     Dosage: 75 UG, 1X/DAY
  5. LEXAPRO [Concomitant]
     Dosage: 10 MG, 1X/DAY
  6. PREMARIN [Concomitant]
     Dosage: 0.625 MG, 1X/DAY
  7. COREG [Concomitant]
     Dosage: 6.25 MG, 2X/DAY

REACTIONS (3)
  - AMNESIA [None]
  - CARDIAC PACEMAKER INSERTION [None]
  - DEMENTIA [None]
